FAERS Safety Report 16931742 (Version 1)
Quarter: 2019Q4

REPORT INFORMATION
  Report Type: Spontaneous
  Country: TR (occurrence: TR)
  Receive Date: 20191017
  Receipt Date: 20191017
  Transmission Date: 20200122
  Serious: Yes (Other)
  Sender: FDA-Public Use
  Company Number: TR-GILEAD-2019-0433041

PATIENT
  Age: 38 Year
  Sex: Male

DRUGS (1)
  1. GENVOYA [Suspect]
     Active Substance: COBICISTAT\ELVITEGRAVIR\EMTRICITABINE\TENOFOVIR ALAFENAMIDE FUMARATE
     Indication: HIV INFECTION
     Dosage: UNK
     Route: 065
     Dates: start: 20180529

REACTIONS (4)
  - Cognitive disorder [Not Recovered/Not Resolved]
  - Treatment noncompliance [Unknown]
  - Blood HIV RNA increased [Unknown]
  - CD4 lymphocytes abnormal [Unknown]

NARRATIVE: CASE EVENT DATE: 2019
